FAERS Safety Report 6375695-6 (Version None)
Quarter: 2009Q3

REPORT INFORMATION
  Report Type: 
  Country: None (occurrence: None)
  Receive Date: 20090924
  Receipt Date: 20090914
  Transmission Date: 20100115
  Serious: Yes (Other)
  Sender: FDA-Public Use
  Company Number: GB-BAYER-200930615GPV

PATIENT

DRUGS (8)
  1. ALKA SELTZER [Suspect]
     Indication: DRUG USE FOR UNKNOWN INDICATION
     Route: 048
  2. IBUPROFEN [Suspect]
     Indication: DRUG USE FOR UNKNOWN INDICATION
     Route: 048
  3. FLUOXETINE [Suspect]
     Indication: DRUG USE FOR UNKNOWN INDICATION
     Route: 048
  4. CITALOPRAM HYDROBROMIDE [Suspect]
     Indication: DRUG USE FOR UNKNOWN INDICATION
     Route: 048
  5. NARDIL [Suspect]
     Indication: DRUG USE FOR UNKNOWN INDICATION
     Route: 048
  6. GAVISCON [Suspect]
     Indication: DRUG USE FOR UNKNOWN INDICATION
     Route: 048
  7. ASPIRIN [Suspect]
     Indication: DRUG USE FOR UNKNOWN INDICATION
     Route: 048
  8. ANADIN EXTRA TABLETS [Suspect]
     Indication: DRUG USE FOR UNKNOWN INDICATION
     Route: 048

REACTIONS (41)
  - ABDOMINAL PAIN [None]
  - BRONCHOSPASM [None]
  - CONJUNCTIVITIS [None]
  - DIARRHOEA [None]
  - DIZZINESS [None]
  - DRUG INTERACTION [None]
  - DUODENAL ULCER [None]
  - DUODENAL ULCER HAEMORRHAGE [None]
  - DUODENAL ULCER PERFORATION [None]
  - DYSPEPSIA [None]
  - DYSPNOEA [None]
  - GASTRIC ULCER [None]
  - GASTRIC ULCER PERFORATION [None]
  - GASTRITIS [None]
  - GASTRITIS HAEMORRHAGIC [None]
  - GASTROINTESTINAL HAEMORRHAGE [None]
  - HAEMATEMESIS [None]
  - HEADACHE [None]
  - HYPERSENSITIVITY [None]
  - LIP SWELLING [None]
  - LOCAL SWELLING [None]
  - MELAENA [None]
  - MYOCARDIAL INFARCTION [None]
  - NAUSEA [None]
  - OESOPHAGITIS [None]
  - PANCREATITIS [None]
  - PARAESTHESIA [None]
  - PEPTIC ULCER [None]
  - PEPTIC ULCER PERFORATION [None]
  - PERIORBITAL OEDEMA [None]
  - PHARYNGEAL OEDEMA [None]
  - PRURITUS [None]
  - PSORIASIS [None]
  - RASH [None]
  - RHINORRHOEA [None]
  - SWOLLEN TONGUE [None]
  - UPPER GASTROINTESTINAL HAEMORRHAGE [None]
  - URTICARIA [None]
  - VERTIGO [None]
  - VOMITING [None]
  - WHEEZING [None]
